FAERS Safety Report 24030831 (Version 1)
Quarter: 2024Q2

REPORT INFORMATION
  Report Type: Spontaneous
  Country: IN (occurrence: IN)
  Receive Date: 20240628
  Receipt Date: 20240628
  Transmission Date: 20240716
  Serious: Yes (Death, Life-Threatening, Other)
  Sender: FDA-Public Use
  Company Number: IN-PFIZER INC-PV202400082023

PATIENT
  Age: 10 Year
  Sex: Male
  Weight: 34 kg

DRUGS (14)
  1. METHYLPREDNISOLONE SODIUM SUCCINATE [Suspect]
     Active Substance: METHYLPREDNISOLONE SODIUM SUCCINATE
     Indication: Pityriasis lichenoides et varioliformis acuta
     Dosage: 15 MG/KG, DAILY, 3 DAYS
     Route: 042
  2. PREDNISOLONE [Suspect]
     Active Substance: PREDNISOLONE
     Indication: Pityriasis lichenoides et varioliformis acuta
     Dosage: TAB 0.5 MG/KG, DAILY
  3. MEROPENEM [Suspect]
     Active Substance: MEROPENEM
     Indication: Pityriasis lichenoides et varioliformis acuta
     Dosage: UNK
  4. TIGECYCLINE [Suspect]
     Active Substance: TIGECYCLINE
     Indication: Pityriasis lichenoides et varioliformis acuta
     Dosage: UNK
  5. PIPERACILLIN AND TAZOBACTAM [Suspect]
     Active Substance: PIPERACILLIN SODIUM\TAZOBACTAM SODIUM
     Indication: Pityriasis lichenoides et varioliformis acuta
     Dosage: UNK, INJECTION
  6. TEICOPLANIN [Suspect]
     Active Substance: TEICOPLANIN
     Indication: Pityriasis lichenoides et varioliformis acuta
     Dosage: UNK
  7. IMMUNE GLOBULIN NOS [Suspect]
     Active Substance: IMMUNE GLOBULIN NOS
     Indication: Pityriasis lichenoides et varioliformis acuta
     Dosage: 2 G/KG OVER A PERIOD OF 3 DAYS
     Route: 042
  8. METHOTREXATE [Suspect]
     Active Substance: METHOTREXATE
     Indication: Pityriasis lichenoides et varioliformis acuta
     Dosage: INJECTION
  9. DEXAMETHASONE [Suspect]
     Active Substance: DEXAMETHASONE
     Indication: Pityriasis lichenoides et varioliformis acuta
     Dosage: UNK
  10. CYCLOSPORINE [Suspect]
     Active Substance: CYCLOSPORINE
     Indication: Pityriasis lichenoides et varioliformis acuta
     Dosage: UNK
     Route: 048
  11. HEPARIN [Suspect]
     Active Substance: HEPARIN SODIUM
     Indication: Pityriasis lichenoides et varioliformis acuta
     Dosage: LOW-MOLECULAR-WEIGHT
  12. COLISTIN [Suspect]
     Active Substance: COLISTIN
     Indication: Pityriasis lichenoides et varioliformis acuta
     Dosage: UNK
  13. CASPOFUNGIN [Suspect]
     Active Substance: CASPOFUNGIN
     Indication: Pityriasis lichenoides et varioliformis acuta
     Dosage: UNK
  14. ALBUMIN HUMAN [Suspect]
     Active Substance: ALBUMIN HUMAN
     Indication: Pityriasis lichenoides et varioliformis acuta
     Dosage: UNK

REACTIONS (2)
  - Drug ineffective for unapproved indication [Fatal]
  - Off label use [Fatal]
